FAERS Safety Report 15475865 (Version 1)
Quarter: 2018Q4

REPORT INFORMATION
  Report Type: Spontaneous
  Country: JP (occurrence: JP)
  Receive Date: 20181009
  Receipt Date: 20181009
  Transmission Date: 20190205
  Serious: Yes (Other)
  Sender: FDA-Public Use
  Company Number: JP-ROCHE-2195408

PATIENT
  Age: 90 Year
  Sex: Female

DRUGS (2)
  1. LUCENTIS [Suspect]
     Active Substance: RANIBIZUMAB
     Indication: AGE-RELATED MACULAR DEGENERATION
     Route: 031
  2. PEGAPTANIB [Concomitant]
     Active Substance: PEGAPTANIB

REACTIONS (4)
  - Condition aggravated [Recovered/Resolved]
  - Ophthalmological examination abnormal [Recovering/Resolving]
  - Drug resistance [Unknown]
  - Cystoid macular oedema [Recovered/Resolved]
